FAERS Safety Report 9379739 (Version 5)
Quarter: 2013Q3

REPORT INFORMATION
  Report Type: Spontaneous
  Country: JP (occurrence: JP)
  Receive Date: 20130702
  Receipt Date: 20130814
  Transmission Date: 20140515
  Serious: Yes (Death, Life-Threatening, Hospitalization, Other)
  Sender: FDA-Public Use
  Company Number: JP-PFIZER INC-2013164671

PATIENT
  Age: 79 Year
  Sex: Male
  Weight: 56 kg

DRUGS (5)
  1. INLYTA [Suspect]
     Indication: METASTATIC RENAL CELL CARCINOMA
     Dosage: 10 MG, 2X/DAY
     Route: 048
     Dates: start: 20130523, end: 20130524
  2. RANMARK [Suspect]
     Indication: METASTASES TO BONE
     Dosage: 120 MG, 1X/DAY
     Route: 058
     Dates: start: 20130522, end: 20130522
  3. HALCION [Concomitant]
     Dosage: UNK
     Route: 048
  4. ENSURE [Concomitant]
     Dosage: UNK
  5. LUPRAC [Concomitant]
     Dosage: UNK
     Route: 048

REACTIONS (4)
  - Liver disorder [Recovered/Resolved]
  - Hypoglycaemia [Recovered/Resolved]
  - Disease progression [Fatal]
  - Metastatic renal cell carcinoma [Fatal]
